FAERS Safety Report 25539162 (Version 1)
Quarter: 2025Q3

REPORT INFORMATION
  Report Type: Spontaneous
  Country: EU (occurrence: EU)
  Receive Date: 20250710
  Receipt Date: 20250710
  Transmission Date: 20251021
  Serious: Yes (Other)
  Sender: PFIZER
  Company Number: None

PATIENT
  Age: 84 Year
  Sex: Male

DRUGS (12)
  1. ELIQUIS [Suspect]
     Active Substance: APIXABAN
     Indication: Atrial fibrillation
     Dosage: 10 MG, 1X/DAY
     Route: 048
     Dates: start: 2023
  2. PANTOPRAZOLE [Suspect]
     Active Substance: PANTOPRAZOLE
     Dosage: 20 MG, 1X/DAY
     Route: 048
  3. BISOPROLOL FUMARATE [Suspect]
     Active Substance: BISOPROLOL FUMARATE
     Dosage: 5 MG, 1X/DAY
     Route: 048
  4. RAMIPRIL [Suspect]
     Active Substance: RAMIPRIL
     Dosage: 5 MG, 1X/DAY
     Route: 048
  5. EZETIMIBE\ROSUVASTATIN [Suspect]
     Active Substance: EZETIMIBE\ROSUVASTATIN
     Dosage: 10 MG, 1X/DAY
     Route: 048
  6. FUROSEMIDE [Suspect]
     Active Substance: FUROSEMIDE
     Dosage: 40 MG, 1X/DAY
     Route: 048
  7. AMIODARONE [Suspect]
     Active Substance: AMIODARONE
     Dosage: 100 MG, 1X/DAY
     Route: 048
  8. ALPRAZOLAM [Suspect]
     Active Substance: ALPRAZOLAM
     Dosage: 0.5 MG, 1X/DAY
     Route: 048
  9. SILODOSIN [Suspect]
     Active Substance: SILODOSIN
     Dosage: 4 MG, 1X/DAY
     Route: 048
  10. FINASTERIDE [Suspect]
     Active Substance: FINASTERIDE
     Dosage: 1 MG, 1X/DAY
     Route: 048
  11. CHOLECALCIFEROL [Suspect]
     Active Substance: CHOLECALCIFEROL
     Dosage: 50000 IU, MONTHLY
     Route: 048
  12. AZITHROMYCIN [Suspect]
     Active Substance: AZITHROMYCIN
     Dosage: 15 MG, 1X/DAY
     Route: 047

REACTIONS (1)
  - Hyperbilirubinaemia [Not Recovered/Not Resolved]

NARRATIVE: CASE EVENT DATE: 20241212
